FAERS Safety Report 7316015-X (Version None)
Quarter: 2011Q1

REPORT INFORMATION
  Report Type: 
  Country: None (occurrence: None)
  Receive Date: 20110225
  Receipt Date: 20110217
  Transmission Date: 20110831
  Serious: Yes (Other)
  Sender: FDA-Public Use
  Company Number: PHHY2011US15110

PATIENT
  Sex: Male

DRUGS (23)
  1. MUCOMYST [Concomitant]
  2. LIPITOR [Concomitant]
  3. ADVAIR DISKUS 100/50 [Concomitant]
  4. FOLIC ACID [Concomitant]
  5. FERROUS SULFATE TAB [Concomitant]
  6. DUONEB [Concomitant]
  7. LASIX [Concomitant]
  8. LEVOTHYROXINE [Concomitant]
  9. FLORINEF [Concomitant]
  10. ALLOPURINOL [Concomitant]
  11. FISH OIL [Concomitant]
  12. ACYCLOVIR [Concomitant]
  13. SENNA [Concomitant]
  14. VITAMIN D [Concomitant]
  15. TYLENOL [Concomitant]
  16. MIDODRINE HYDROCHLORIDE [Concomitant]
  17. LOPRESSOR [Concomitant]
  18. MULTI-VITAMINS [Concomitant]
  19. TOBI [Suspect]
     Indication: BRONCHIECTASIS
     Dosage: 300 MG, BID
  20. LOTRIMIN [Concomitant]
  21. ASPIRIN [Concomitant]
  22. GLUCOTEN [Concomitant]
  23. CLARITIN [Concomitant]

REACTIONS (3)
  - ASTHENIA [None]
  - COUGH [None]
  - DEPRESSION [None]
